FAERS Safety Report 21634079 (Version 3)
Quarter: 2024Q3

REPORT INFORMATION
  Report Type: Report from Study
  Country: GB (occurrence: GB)
  Receive Date: 20221123
  Receipt Date: 20240802
  Transmission Date: 20241016
  Serious: Yes (Death, Other)
  Sender: PFIZER
  Company Number: GB-PFIZER INC-PV202200108106

PATIENT
  Sex: Female
  Weight: 70 kg

DRUGS (1)
  1. XELJANZ [Suspect]
     Active Substance: TOFACITINIB CITRATE
     Indication: Rheumatoid arthritis
     Dosage: 5 MG
     Route: 048
     Dates: start: 20191015, end: 20201015

REACTIONS (3)
  - Neutropenia [Fatal]
  - Sepsis [Fatal]
  - Lymphocytic leukaemia [Fatal]

NARRATIVE: CASE EVENT DATE: 20211223
